FAERS Safety Report 6985132-6 (Version None)
Quarter: 2010Q3

REPORT INFORMATION
  Report Type: 
  Country: None (occurrence: None)
  Receive Date: 20100915
  Receipt Date: 20100910
  Transmission Date: 20110219
  Serious: Yes (Disabling)
  Sender: FDA-Public Use
  Company Number: CH-ROCHE-718147

PATIENT
  Sex: Female
  Weight: 57 kg

DRUGS (5)
  1. BONIVA [Suspect]
     Indication: OSTEOPOROSIS
     Route: 048
     Dates: start: 20100528, end: 20100728
  2. ARIMIDEX [Concomitant]
     Indication: BREAST CANCER
  3. L-DOPA [Concomitant]
     Indication: PROGRESSIVE SUPRANUCLEAR PALSY
  4. STALEVO 100 [Concomitant]
     Indication: PARKINSON'S DISEASE
     Route: 048
  5. CALPEROS D3 [Concomitant]
     Route: 048

REACTIONS (4)
  - CONVULSION [None]
  - FALL [None]
  - NEUROLOGICAL DECOMPENSATION [None]
  - RIB FRACTURE [None]
